FAERS Safety Report 7511072-X (Version None)
Quarter: 2011Q2

REPORT INFORMATION
  Report Type: 
  Country: None (occurrence: None)
  Receive Date: 20110519
  Receipt Date: 20110504
  Transmission Date: 20111010
  Serious: Yes (Death, Hospitalization)
  Sender: FDA-Public Use
  Company Number: 2011MA005261

PATIENT
  Age: 50 Year
  Sex: Male

DRUGS (5)
  1. TEMOZOLOMIDE [Concomitant]
  2. DEXAMETHASONE [Concomitant]
  3. PHENYTOIN [Suspect]
     Indication: STATUS EPILEPTICUS
     Dosage: 1 GM, 1X, IV
     Route: 042
     Dates: start: 20060101, end: 20061201
  4. CISPLATIN [Concomitant]
  5. CARMUSTINE [Concomitant]

REACTIONS (7)
  - OPHTHALMOPLEGIA [None]
  - HEMIANOPIA [None]
  - DRUG INTERACTION [None]
  - NEOPLASM PROGRESSION [None]
  - GLIOBLASTOMA MULTIFORME [None]
  - CEREBRAL HAEMORRHAGE [None]
  - EPILEPSY [None]
